FAERS Safety Report 4714907-9 (Version None)
Quarter: 2005Q3

REPORT INFORMATION
  Report Type: 
  Country: None (occurrence: None)
  Receive Date: 20050715
  Receipt Date: 20050706
  Transmission Date: 20060218
  Serious: Yes (Other)
  Sender: FDA-Public Use
  Company Number: PHFR2005GB02363

PATIENT
  Age: 86 Year
  Sex: Male

DRUGS (1)
  1. AREDIA [Suspect]
     Indication: BONE PAIN
     Dosage: 60MG/4 WEEKS

REACTIONS (5)
  - BODY TEMPERATURE INCREASED [None]
  - CONFUSIONAL STATE [None]
  - COORDINATION ABNORMAL [None]
  - MUSCLE TWITCHING [None]
  - TETANY [None]
